FAERS Safety Report 11508399 (Version 1)
Quarter: 2015Q3

REPORT INFORMATION
  Report Type: Spontaneous
  Country: US (occurrence: US)
  Receive Date: 20150915
  Receipt Date: 20150915
  Transmission Date: 20151125
  Serious: Yes (Hospitalization)
  Sender: FDA-Public Use
  Company Number: US-SA-2015SA138830

PATIENT
  Age: 64 Year
  Sex: Male

DRUGS (2)
  1. HEPARIN [Suspect]
     Active Substance: HEPARIN SODIUM
     Dosage: DOSE:8000 UNIT(S)
     Route: 040
  2. ENOXAPARIN SODIUM. [Suspect]
     Active Substance: ENOXAPARIN SODIUM
     Indication: PROPHYLAXIS
     Route: 065

REACTIONS (7)
  - Heparin-induced thrombocytopenia [Recovered/Resolved]
  - Cardio-respiratory arrest [Unknown]
  - Sensory loss [Unknown]
  - Injection site rash [Recovered/Resolved]
  - Heparin-induced thrombocytopenia test positive [Recovered/Resolved]
  - Bronchospasm [Unknown]
  - Brain injury [Unknown]
